FAERS Safety Report 6780964-1 (Version None)
Quarter: 2010Q2

REPORT INFORMATION
  Report Type: 
  Country: None (occurrence: None)
  Receive Date: 20100621
  Receipt Date: 20100607
  Transmission Date: 20101027
  Serious: Yes (Other)
  Sender: FDA-Public Use
  Company Number: US-ELI_LILLY_AND_COMPANY-US201006002529

PATIENT
  Sex: Female

DRUGS (3)
  1. FORTEO [Suspect]
     Indication: OSTEOPOROSIS
     Dosage: 20 UG, UNKNOWN
     Dates: start: 20090101
  2. SULFADIAZINE [Concomitant]
     Dosage: 500 MG, OTHER
  3. FOLIC ACID [Concomitant]
     Dosage: UNK, DAILY (1/D)

REACTIONS (2)
  - COUGH [None]
  - LUNG CARCINOMA CELL TYPE UNSPECIFIED STAGE IV [None]
